FAERS Safety Report 7833203-4 (Version None)
Quarter: 2011Q4

REPORT INFORMATION
  Report Type: 
  Country: None (occurrence: None)
  Receive Date: 20111024
  Receipt Date: 20111019
  Transmission Date: 20120403
  Serious: Yes (Death, Hospitalization)
  Sender: FDA-Public Use
  Company Number: JP-JNJFOC-20091008999

PATIENT
  Sex: Female
  Weight: 45 kg

DRUGS (13)
  1. FULCALIQ [Concomitant]
     Indication: ILEUS
     Route: 041
     Dates: end: 20090712
  2. PRIMPERAN TAB [Concomitant]
     Indication: ILEUS
     Route: 042
     Dates: end: 20090712
  3. FENTANYL [Concomitant]
     Indication: OVARIAN CANCER RECURRENT
     Route: 062
  4. DOXORUBICIN HCL [Suspect]
     Indication: OVARIAN CANCER RECURRENT
     Route: 042
     Dates: start: 20090604, end: 20090604
  5. AZUNOL [Concomitant]
     Indication: PROPHYLAXIS
     Route: 049
     Dates: start: 20090604
  6. MAGNESIUM OXIDE [Concomitant]
     Indication: CONSTIPATION
     Route: 048
  7. ISOSORBIDE DINITRATE [Concomitant]
     Route: 062
     Dates: start: 20090717
  8. DOXORUBICIN HCL [Suspect]
     Route: 042
     Dates: start: 20090710, end: 20090710
  9. PRIMPERAN TAB [Concomitant]
     Route: 048
  10. LECICARBON [Concomitant]
     Indication: CONSTIPATION
     Route: 054
  11. FAMOTIDINE [Concomitant]
     Indication: ILEUS
     Route: 042
     Dates: end: 20090712
  12. SCOPOLAMINE [Concomitant]
     Route: 048
  13. MINERALIN [Concomitant]
     Indication: ILEUS
     Route: 042
     Dates: end: 20090712

REACTIONS (4)
  - NEUTROPHIL COUNT DECREASED [None]
  - OVARIAN CANCER RECURRENT [None]
  - BACTERAEMIA [None]
  - ISCHAEMIC CARDIOMYOPATHY [None]
